FAERS Safety Report 4921560-8 (Version None)
Quarter: 2006Q1

REPORT INFORMATION
  Report Type: 
  Country: None (occurrence: None)
  Receive Date: 20060223
  Receipt Date: 20060223
  Transmission Date: 20060701
  Serious: No
  Sender: FDA-Public Use
  Company Number: None

PATIENT
  Sex: Female
  Weight: 84.8226 kg

DRUGS (1)
  1. TAXOL [Suspect]

REACTIONS (2)
  - CORONARY ARTERY PERFORATION [None]
  - PROCEDURAL COMPLICATION [None]
